FAERS Safety Report 23346780 (Version 2)
Quarter: 2024Q1

REPORT INFORMATION
  Report Type: Spontaneous
  Country: BE (occurrence: BE)
  Receive Date: 20231228
  Receipt Date: 20240103
  Transmission Date: 20240409
  Serious: Yes (Hospitalization)
  Sender: FDA-Public Use
  Company Number: BE-MYLANLABS-2023M1138062

PATIENT
  Age: 70 Year
  Sex: Male

DRUGS (5)
  1. TICAGRELOR [Interacting]
     Active Substance: TICAGRELOR
     Indication: Antiplatelet therapy
     Dosage: 90 MILLIGRAM, BID
     Route: 065
  2. TICAGRELOR [Interacting]
     Active Substance: TICAGRELOR
     Dosage: 180 MILLIGRAM, BID
     Route: 065
  3. CARBAMAZEPINE [Interacting]
     Active Substance: CARBAMAZEPINE
     Indication: Epilepsy
     Dosage: UNK, QD
     Route: 065
  4. ASPIRIN [Concomitant]
     Active Substance: ASPIRIN
     Indication: Antiplatelet therapy
     Dosage: UNK, INITIAL DOSAGE NOT STATED
     Route: 065
  5. ASPIRIN [Concomitant]
     Active Substance: ASPIRIN
     Dosage: 100 MILLIGRAM, QD
     Route: 065

REACTIONS (6)
  - Labelled drug-drug interaction medication error [Recovered/Resolved]
  - Drug level decreased [Recovered/Resolved]
  - Vascular stent thrombosis [Recovered/Resolved]
  - Vascular graft occlusion [Recovered/Resolved]
  - Acute coronary syndrome [Recovered/Resolved]
  - Shock [Recovered/Resolved]
